FAERS Safety Report 15189772 (Version 1)
Quarter: 2018Q3

REPORT INFORMATION
  Report Type: Spontaneous
  Country: FR (occurrence: FR)
  Receive Date: 20180724
  Receipt Date: 20180724
  Transmission Date: 20181010
  Serious: Yes (Hospitalization)
  Sender: FDA-Public Use
  Company Number: FR-INGENUS PHARMACEUTICALS, LLC-INF201807-000709

PATIENT
  Age: 63 Year
  Sex: Female

DRUGS (6)
  1. DOCETAXEL. [Suspect]
     Active Substance: DOCETAXEL
     Indication: BREAST CANCER
  2. CYCLOPHOSPHAMIDE. [Concomitant]
     Active Substance: CYCLOPHOSPHAMIDE
     Dosage: 4 CYCLES GIVEN EVERY 21 DAYS
  3. EPIRUBICIN [Concomitant]
     Active Substance: EPIRUBICIN
     Dosage: 4 CYCLES GIVEN EVERY 21 DAYS
  4. 5 FLUOROURACIL [Concomitant]
     Active Substance: FLUOROURACIL
     Dosage: 4 CYCLES GIVEN EVERY 21 DAYS
  5. LETROZOLE. [Concomitant]
     Active Substance: LETROZOLE
  6. TAMOXIFEN [Concomitant]
     Active Substance: TAMOXIFEN

REACTIONS (1)
  - Acute generalised exanthematous pustulosis [Recovered/Resolved]
